FAERS Safety Report 7302846-9 (Version None)
Quarter: 2011Q1

REPORT INFORMATION
  Report Type: 
  Country: None (occurrence: None)
  Receive Date: 20110218
  Receipt Date: 20110211
  Transmission Date: 20110831
  Serious: Yes (Other)
  Sender: FDA-Public Use
  Company Number: DE-CEPHALON-2011000477

PATIENT
  Sex: Male
  Weight: 80 kg

DRUGS (1)
  1. FENTANYL CITRATE [Suspect]
     Route: 002
     Dates: start: 20090101

REACTIONS (2)
  - DEPENDENCE [None]
  - INTENTIONAL DRUG MISUSE [None]
